FAERS Safety Report 9154030 (Version 2)
Quarter: 2013Q1

REPORT INFORMATION
  Report Type: Spontaneous
  Country: US (occurrence: US)
  Receive Date: 20130311
  Receipt Date: 20130315
  Transmission Date: 20140127
  Serious: Yes (Other)
  Sender: FDA-Public Use
  Company Number: US-PFIZER INC-2013079998

PATIENT
  Age: 61 Year
  Sex: Female
  Weight: 60.32 kg

DRUGS (1)
  1. LYRICA [Suspect]
     Indication: CONVULSION
     Dosage: 150 MG, 3X/DAY
     Dates: start: 2007

REACTIONS (4)
  - Convulsion [Unknown]
  - Malaise [Unknown]
  - Gait disturbance [Unknown]
  - Confusional state [Unknown]
